FAERS Safety Report 14772600 (Version 2)
Quarter: 2018Q2

REPORT INFORMATION
  Report Type: Spontaneous
  Country: GB (occurrence: GB)
  Receive Date: 20180418
  Receipt Date: 20180606
  Transmission Date: 20180711
  Serious: Yes (Other)
  Sender: FDA-Public Use
  Company Number: GB-ACCORD-065759

PATIENT
  Age: 63 Year
  Sex: Female

DRUGS (6)
  1. AMITRIPTYLINE [Suspect]
     Active Substance: AMITRIPTYLINE
     Indication: PRODUCT USED FOR UNKNOWN INDICATION
  2. TRAMADOL. [Concomitant]
     Active Substance: TRAMADOL
     Indication: PAIN
     Dosage: 1, 2, 3 TIMES A DAY AS NEEDED
     Dates: start: 201712
  3. LANSOPRAZOLE. [Concomitant]
     Active Substance: LANSOPRAZOLE
     Indication: GASTROOESOPHAGEAL REFLUX DISEASE
  4. PARACETAMOL [Concomitant]
     Active Substance: ACETAMINOPHEN
  5. QUINIDINE [Concomitant]
     Active Substance: QUINIDINE
     Indication: MUSCLE SPASMS
  6. SEVREDOL [Concomitant]
     Active Substance: MORPHINE
     Indication: PAIN

REACTIONS (21)
  - Nausea [Unknown]
  - Feeding disorder [Unknown]
  - Malaise [Unknown]
  - Weight increased [Not Recovered/Not Resolved]
  - Vision blurred [Unknown]
  - Stress [Unknown]
  - Decreased appetite [Unknown]
  - Diplopia [Unknown]
  - Seizure [Unknown]
  - Tinnitus [Unknown]
  - Contusion [Unknown]
  - Headache [Unknown]
  - Nightmare [Unknown]
  - Breast swelling [Unknown]
  - Paraesthesia [Unknown]
  - Heart rate irregular [Unknown]
  - Diarrhoea [Unknown]
  - Chromaturia [Unknown]
  - Nervousness [Unknown]
  - Restlessness [Unknown]
  - Insomnia [Unknown]
